FAERS Safety Report 6296953-X (Version None)
Quarter: 2009Q3

REPORT INFORMATION
  Report Type: 
  Country: None (occurrence: None)
  Receive Date: 20090804
  Receipt Date: 20090723
  Transmission Date: 20100115
  Serious: Yes (Disabling, Congenital Anomaly)
  Sender: FDA-Public Use
  Company Number: CH-SANOFI-SYNTHELABO-A01200907998

PATIENT

DRUGS (4)
  1. SEROQUEL [Suspect]
     Indication: DRUG EXPOSURE DURING PREGNANCY
     Dosage: 100MG 1 PER 2 DAYS
     Route: 064
     Dates: start: 20070101
  2. SERESTA [Suspect]
     Indication: DRUG EXPOSURE DURING PREGNANCY
     Route: 064
     Dates: start: 20070101
  3. STILNOX [Suspect]
     Indication: DRUG EXPOSURE DURING PREGNANCY
     Route: 064
     Dates: start: 20070101
  4. REMERON [Suspect]
     Indication: DRUG EXPOSURE DURING PREGNANCY
     Route: 064
     Dates: start: 20080201, end: 20081001

REACTIONS (2)
  - DRUG EXPOSURE DURING PREGNANCY [None]
  - PSYCHOMOTOR SKILLS IMPAIRED [None]
